FAERS Safety Report 14039298 (Version 1)
Quarter: 2017Q4

REPORT INFORMATION
  Report Type: Spontaneous
  Country: US (occurrence: US)
  Receive Date: 20171004
  Receipt Date: 20171004
  Transmission Date: 20180321
  Serious: No
  Sender: FDA-Public Use
  Company Number: US-INDIVIOR LIMITED-INDV-099147-2017

PATIENT
  Age: 28 Year
  Sex: Male

DRUGS (2)
  1. SUBOXONE [Suspect]
     Active Substance: BUPRENORPHINE HYDROCHLORIDE\NALOXONE HYDROCHLORIDE
     Dosage: 4MG, PRN
     Route: 060
  2. SUBOXONE [Suspect]
     Active Substance: BUPRENORPHINE HYDROCHLORIDE\NALOXONE HYDROCHLORIDE
     Indication: DRUG USE DISORDER
     Dosage: 8MG, TWICE DAILY
     Route: 060

REACTIONS (9)
  - Impatience [Unknown]
  - Euphoric mood [Unknown]
  - Agitation [Unknown]
  - Irritability [Unknown]
  - Logorrhoea [Unknown]
  - Product use issue [Unknown]
  - Drug dependence [Unknown]
  - Abnormal behaviour [Unknown]
  - Product preparation error [Unknown]
